FAERS Safety Report 8268181-X (Version None)
Quarter: 2012Q2

REPORT INFORMATION
  Report Type: 
  Country: None (occurrence: None)
  Receive Date: 20120409
  Receipt Date: 20120404
  Transmission Date: 20120825
  Serious: Yes (Hospitalization, Other)
  Sender: FDA-Public Use
  Company Number: DE-ABBOTT-11P-062-0871863-00

PATIENT
  Sex: Male

DRUGS (1)
  1. HUMIRA [Suspect]
     Indication: CROHN'S DISEASE
     Route: 058
     Dates: start: 20091112, end: 20111001

REACTIONS (10)
  - ENTEROSTOMY [None]
  - INTESTINAL STENOSIS [None]
  - PLEURAL EFFUSION [None]
  - MESENTERIC LYMPHADENOPATHY [None]
  - INTESTINAL ANASTOMOSIS COMPLICATION [None]
  - DRUG INEFFECTIVE [None]
  - INFECTIOUS PERITONITIS [None]
  - WOUND DEHISCENCE [None]
  - SEPSIS [None]
  - ENTEROVESICAL FISTULA [None]
